FAERS Safety Report 4536659-8 (Version None)
Quarter: 2004Q4

REPORT INFORMATION
  Report Type: 
  Country: None (occurrence: None)
  Receive Date: 20041220
  Receipt Date: 20041206
  Transmission Date: 20050328
  Serious: Yes (Hospitalization, Other)
  Sender: FDA-Public Use
  Company Number: 2004105620

PATIENT
  Age: 44 Year
  Sex: Female
  Weight: 55 kg

DRUGS (8)
  1. NEURONTIN [Suspect]
     Indication: ILL-DEFINED DISORDER
     Dosage: 1800 MG (600 MG, 3 IN 1 D), ORAL
     Route: 048
     Dates: start: 20040601, end: 20040723
  2. AMITRIPTYLINE HYDROCHLORIDE [Suspect]
     Indication: ILL-DEFINED DISORDER
     Dosage: 20 MG (20 MG, 1 IN 1 D), ORAL
     Route: 048
     Dates: start: 20040715, end: 20040723
  3. MIANSERIN HYDROCHLORIDE (MIANSERIN HYDROCHLORIDE) [Suspect]
     Indication: ILL-DEFINED DISORDER
     Dosage: 30 MG (30 MG, 1 IN 1 D), ORAL
     Route: 048
     Dates: start: 20040723
  4. ZOLPIDEM TARTRATE [Suspect]
     Indication: ILL-DEFINED DISORDER
     Dosage: 1 MG (1 MG, 1 IN 1 D), ORAL
     Route: 048
  5. FENTANYL [Suspect]
     Indication: PUBIC PAIN
     Dosage: 25 MG (25 MG, 1 IN 1 D), SUBCUTANEOUS
     Route: 058
     Dates: start: 20040723, end: 20040725
  6. MORPHINE SULFATE [Suspect]
     Indication: ILL-DEFINED DISORDER
     Dosage: 60 MG (10 MG, 6 IN 1 D), ORAL
     Route: 048
     Dates: start: 20040715, end: 20040723
  7. MACROGOL (MACROGOL) [Concomitant]
  8. EUGYNON      (ETHINYLESTRADIOL, LEVONORGESTREL) [Concomitant]

REACTIONS (12)
  - AGGRESSION [None]
  - AGITATION [None]
  - ANXIETY [None]
  - CONDITION AGGRAVATED [None]
  - CRYING [None]
  - DELIRIUM [None]
  - HISTRIONIC PERSONALITY DISORDER [None]
  - MENTAL DISORDER [None]
  - NIGHTMARE [None]
  - SUICIDAL IDEATION [None]
  - TRISMUS [None]
  - WEIGHT DECREASED [None]
